FAERS Safety Report 5484107-6 (Version None)
Quarter: 2007Q4

REPORT INFORMATION
  Report Type: 
  Country: None (occurrence: None)
  Receive Date: 20071012
  Receipt Date: 20071001
  Transmission Date: 20080405
  Serious: Yes (Other)
  Sender: FDA-Public Use
  Company Number: US-SHR-US-2007-026840

PATIENT
  Age: 60 Year
  Sex: Male
  Weight: 77.098 kg

DRUGS (1)
  1. BETASERON [Suspect]
     Indication: RELAPSING-REMITTING MULTIPLE SCLEROSIS
     Dosage: 8 MIU, EVERY 2D
     Route: 058
     Dates: start: 20070309

REACTIONS (6)
  - DEHYDRATION [None]
  - DIZZINESS [None]
  - FALL [None]
  - INJECTION SITE REACTION [None]
  - MULTIPLE SCLEROSIS [None]
  - SYNCOPE [None]
